FAERS Safety Report 20810585 (Version 1)
Quarter: 2022Q2

REPORT INFORMATION
  Report Type: Spontaneous
  Country: US (occurrence: US)
  Receive Date: 20220510
  Receipt Date: 20220510
  Transmission Date: 20220720
  Serious: Yes (Other)
  Sender: FDA-Public Use
  Company Number: US-TEVA-2022-US-2034062

PATIENT
  Age: 53 Year
  Sex: Female

DRUGS (1)
  1. EPINEPHRINE [Suspect]
     Active Substance: EPINEPHRINE
     Dosage: 0.3 MG / 0.3 ML
     Route: 065

REACTIONS (2)
  - Device delivery system issue [Unknown]
  - Illness [Unknown]

NARRATIVE: CASE EVENT DATE: 20220423
